FAERS Safety Report 21341575 (Version 1)
Quarter: 2022Q3

REPORT INFORMATION
  Report Type: Spontaneous
  Country: CN (occurrence: CN)
  Receive Date: 20220916
  Receipt Date: 20220916
  Transmission Date: 20221027
  Serious: Yes (Other)
  Sender: FDA-Public Use
  Company Number: None

PATIENT
  Age: 31 Year
  Sex: Female
  Weight: 51 kg

DRUGS (6)
  1. CYCLOPHOSPHAMIDE [Suspect]
     Active Substance: CYCLOPHOSPHAMIDE
     Indication: Acute lymphocytic leukaemia
     Dosage: 800MG, Q 7 DAYS, DILUTED WITH 0.9% SODIUM CHLORIDE (500ML)
     Route: 041
     Dates: start: 20220720, end: 20220727
  2. SODIUM CHLORIDE [Suspect]
     Active Substance: SODIUM CHLORIDE
     Indication: Medication dilution
     Dosage: 500ML, Q 7 DAYS, DILUTED IN CYCLOPHOSPHAMIDE
     Route: 041
     Dates: start: 20220720, end: 20220727
  3. SODIUM CHLORIDE [Suspect]
     Active Substance: SODIUM CHLORIDE
     Dosage: 250 ML, Q2D, DILUTED IN DAUNORUBICIN HYDROCHLORIDE
     Route: 041
     Dates: start: 20220720, end: 20220724
  4. SODIUM CHLORIDE [Suspect]
     Active Substance: SODIUM CHLORIDE
     Dosage: 100 ML, Q7D, DILUTED IN VINCRISTINE SULFATE
     Route: 041
     Dates: start: 20220720, end: 20220810
  5. DAUNORUBICIN HYDROCHLORIDE [Suspect]
     Active Substance: DAUNORUBICIN HYDROCHLORIDE
     Indication: Acute lymphocytic leukaemia
     Dosage: 40 MG, Q2D, DILUTED WITH 0.9% SODIUM CHLORIDE (250ML)
     Route: 041
     Dates: start: 20220720, end: 20220724
  6. VINCRISTINE SULFATE [Suspect]
     Active Substance: VINCRISTINE SULFATE
     Indication: Acute lymphocytic leukaemia
     Dosage: 2 MG, Q7D, DILUTED WITH 0.9% SODIUM CHLORIDE (100ML)
     Route: 041
     Dates: start: 20220720, end: 20220810

REACTIONS (2)
  - Myelosuppression [Recovering/Resolving]
  - Platelet count decreased [Recovering/Resolving]

NARRATIVE: CASE EVENT DATE: 20220812
